FAERS Safety Report 8030692 (Version 2)
Quarter: 2013Q4

REPORT INFORMATION
  Report Type: Report from Study
  Country: IN (occurrence: IN)
  Receive Date: 20110712
  Receipt Date: 20131101
  Transmission Date: 20140711
  Serious: Yes (Hospitalization, Other)
  Sender: FDA-Public Use
  Company Number: PHHO2011IN10470

PATIENT
  Sex: 0

DRUGS (10)
  1. NEORAL [Suspect]
     Indication: RENAL TRANSPLANT
     Dosage: 175 MG IN MORNING AND 150 MG IN EVENING
     Route: 048
     Dates: start: 20110409
  2. MYFORTIC [Concomitant]
     Indication: RENAL TRANSPLANT
     Dosage: 360 MG, 2-1-2
     Route: 048
     Dates: start: 20110409
  3. PREDNISOLONE [Concomitant]
     Indication: IMMUNOSUPPRESSION
     Dosage: 20 MG, QD
     Dates: start: 20110409, end: 20110613
  4. AMLODIPIN [Concomitant]
     Indication: HYPERTENSION
     Dosage: 5 MG, BID
     Route: 048
     Dates: start: 20110409, end: 20110613
  5. RANTAC [Concomitant]
     Indication: ANTACID THERAPY
     Dosage: 150 MG, BID
     Route: 048
     Dates: start: 20110409, end: 20110613
  6. SEPTRAN [Concomitant]
     Indication: ANTIBIOTIC PROPHYLAXIS
     Dosage: UNK
     Route: 048
     Dates: start: 20110409
  7. WYSOLONE [Concomitant]
     Indication: IMMUNOSUPPRESSION
     Dosage: 20 MG, QD
     Dates: start: 20110409
  8. PANTOCID (PANTOPRAZOLE SODIUM) [Concomitant]
     Indication: ANTACID THERAPY
     Dosage: 40 MG, QD
     Route: 048
     Dates: start: 20110409
  9. SHELCAL [Concomitant]
     Indication: MINERAL SUPPLEMENTATION
     Dosage: 500 MG, TID
     Route: 048
     Dates: start: 20110409, end: 20110613
  10. BECOSULES CAPSULE [Concomitant]
     Indication: VITAMIN SUPPLEMENTATION
     Dosage: UNK
     Route: 048
     Dates: start: 20110409, end: 20110613

REACTIONS (1)
  - Transplant dysfunction [Recovering/Resolving]
